FAERS Safety Report 9106755 (Version 5)
Quarter: 2013Q3

REPORT INFORMATION
  Report Type: Spontaneous
  Country: US (occurrence: US)
  Receive Date: 20130222
  Receipt Date: 20130903
  Transmission Date: 20140515
  Serious: Yes (Hospitalization)
  Sender: FDA-Public Use
  Company Number: US-UCBSA-060340

PATIENT
  Age: 79 Year
  Sex: Female

DRUGS (17)
  1. KEPPRA XR [Suspect]
     Indication: CONVULSION
     Dosage: DOSE STRENGH :500 MG, EXPIRATION DATE FOR LOT 71509: 30/APR/2015
  2. AMBIEN [Suspect]
     Dosage: UNKNOWN DOSE
  3. HYDROCODONE ACETAMINOPHEN [Concomitant]
     Indication: MIGRAINE
     Dosage: 7.5-500 MG EVERY 4-6 HOURS AS NEEDED
  4. PROMETHAZINE [Concomitant]
     Indication: NAUSEA
     Dosage: 25 MG EVERY 6 HR AS NEEDED
  5. AMIODARONE HCL [Concomitant]
  6. ACEBUTALOL [Concomitant]
  7. KLONOPIN [Concomitant]
     Dosage: 1 MG 3 TABLETS DAILY
  8. NEUROTIN [Concomitant]
     Indication: NEURALGIA
  9. BUTALBH/ASAP/CAFF [Concomitant]
     Indication: MIGRAINE
     Dosage: 50 MG/325 MG/40 MG, 1 EVERY 6 HOURS
  10. CYCLOBENZAPRINE [Concomitant]
     Indication: BACK PAIN
     Dosage: 10 MG 1-2 AS NEEDED
  11. LOSARTAN POTASSIUM [Concomitant]
     Dosage: 50 MG 1 DAILY CAN TAKE 2 IF PRESSURE EXCEEDS 180
  12. POTASSIUM CL ER [Concomitant]
     Dosage: EXTENDED RELEASE
  13. NASONEX [Concomitant]
     Dosage: 2 PUFFS IN EACH NOSTRIL TWICE DAILY AS NEEDED
     Route: 045
  14. OSCAL 600D [Concomitant]
     Dosage: 600 -4 TABLETS DAILY
  15. VITAMIN D3 [Concomitant]
  16. ICAPS [Concomitant]
     Dosage: 2 A DAY
     Route: 047
  17. GENTEAL [Concomitant]
     Dosage: 2 DROPS EACH EYE DAILY

REACTIONS (8)
  - Subdural haematoma [Unknown]
  - Cerebral haemorrhage [Recovered/Resolved]
  - Hypokinesia [Unknown]
  - Large intestine perforation [Recovered/Resolved]
  - Fall [Recovered/Resolved]
  - Head injury [Recovering/Resolving]
  - Hallucination [Recovered/Resolved]
  - Inappropriate schedule of drug administration [Unknown]
